FAERS Safety Report 7960914-2 (Version None)
Quarter: 2011Q4

REPORT INFORMATION
  Report Type: 
  Country: None (occurrence: None)
  Receive Date: 20111207
  Receipt Date: 20111129
  Transmission Date: 20120403
  Serious: Yes (Other)
  Sender: FDA-Public Use
  Company Number: US-JNJFOC-20111200979

PATIENT
  Age: 68 Year
  Sex: Female

DRUGS (3)
  1. REOPRO [Suspect]
     Indication: STENT PLACEMENT
     Route: 042
  2. HEPARIN [Suspect]
     Indication: PRODUCT USED FOR UNKNOWN INDICATION
     Route: 065
  3. EFFIENT [Suspect]
     Indication: STENT PLACEMENT
     Route: 065

REACTIONS (4)
  - HAEMORRHAGE [None]
  - PNEUMONIA [None]
  - PNEUMOTHORAX [None]
  - SEPSIS [None]
